FAERS Safety Report 4933457-8 (Version None)
Quarter: 2006Q1

REPORT INFORMATION
  Report Type: 
  Country: None (occurrence: None)
  Receive Date: 20060111
  Receipt Date: 20050402
  Transmission Date: 20060701
  Serious: Yes (Hospitalization)
  Sender: FDA-Public Use
  Company Number: A001-002-006448

PATIENT
  Age: 84 Year
  Sex: Female
  Weight: 61 kg

DRUGS (10)
  1. ARICEPT [Suspect]
     Indication: DEMENTIA
     Dosage: ORAL
     Route: 048
  2. ARICEPT [Suspect]
     Dosage: 10 MG, 1 IN 1 D, ORAL
     Route: 048
  3. XANAX [Suspect]
     Dosage: 10 MG, ORAL
     Route: 048
  4. XANAX [Suspect]
     Dosage: ORAL
     Route: 048
  5. NAMENDA [Suspect]
     Dosage: 10 MG, ORAL
     Route: 048
     Dates: start: 20040101
  6. ASPIRIN [Concomitant]
  7. CITRACAL (CALCIUM CITRATE) [Concomitant]
  8. PLAVIX [Concomitant]
  9. VITAMIN E [Concomitant]
  10. LEXAPRO [Concomitant]

REACTIONS (9)
  - ANOREXIA [None]
  - DIARRHOEA [None]
  - DIZZINESS [None]
  - HYPOTENSION [None]
  - SYNCOPE [None]
  - TRANSIENT ISCHAEMIC ATTACK [None]
  - TREMOR [None]
  - URINARY TRACT INFECTION [None]
  - VOMITING [None]
